FAERS Safety Report 6247395-4 (Version None)
Quarter: 2009Q2

REPORT INFORMATION
  Report Type: 
  Country: None (occurrence: None)
  Receive Date: 20090626
  Receipt Date: 20090622
  Transmission Date: 20091009
  Serious: No
  Sender: FDA-Public Use
  Company Number: D0061718A

PATIENT
  Sex: Male

DRUGS (1)
  1. ATMADISC MITE [Suspect]
     Route: 065

REACTIONS (4)
  - ACCIDENTAL OVERDOSE [None]
  - DIZZINESS [None]
  - HEART RATE INCREASED [None]
  - RESTLESSNESS [None]
